FAERS Safety Report 25512517 (Version 1)
Quarter: 2025Q3

REPORT INFORMATION
  Report Type: Spontaneous
  Country: US (occurrence: US)
  Receive Date: 20250703
  Receipt Date: 20250703
  Transmission Date: 20251020
  Serious: No
  Sender: RADIUS PHARM
  Company Number: US-RADIUS HEALTH INC.-2024US008115

PATIENT
  Sex: Female

DRUGS (2)
  1. ABALOPARATIDE [Suspect]
     Active Substance: ABALOPARATIDE
     Indication: Product used for unknown indication
     Route: 058
  2. OZEMPIC [Concomitant]
     Active Substance: SEMAGLUTIDE
     Indication: Product used for unknown indication
     Route: 065

REACTIONS (8)
  - Product dose omission in error [Unknown]
  - Product use complaint [Unknown]
  - Dizziness [Unknown]
  - Increased appetite [Unknown]
  - Injection site pain [Unknown]
  - Palpitations [Recovering/Resolving]
  - Fear of injection [Unknown]
  - Intentional dose omission [Unknown]
